FAERS Safety Report 5386111-5 (Version None)
Quarter: 2007Q3

REPORT INFORMATION
  Report Type: 
  Country: None (occurrence: None)
  Receive Date: 20070710
  Receipt Date: 20070627
  Transmission Date: 20080115
  Serious: Yes (Hospitalization)
  Sender: FDA-Public Use
  Company Number: 02100-JPN-07-0322

PATIENT
  Age: 73 Year
  Sex: Female

DRUGS (4)
  1. CILOSTAZOL [Suspect]
     Indication: CEREBRAL INFARCTION
     Dosage: 100 MG/200 MG; ORAL
     Route: 048
     Dates: start: 20060627, end: 20060710
  2. CILOSTAZOL [Suspect]
     Indication: CEREBRAL INFARCTION
     Dosage: 100 MG/200 MG; ORAL
     Route: 048
     Dates: start: 20060711
  3. CLOPIDOGREL [Concomitant]
  4. DIGOXIN [Concomitant]

REACTIONS (2)
  - MUSCULAR WEAKNESS [None]
  - PAIN IN EXTREMITY [None]
